FAERS Safety Report 11145758 (Version 3)
Quarter: 2015Q3

REPORT INFORMATION
  Report Type: Spontaneous
  Country: IT (occurrence: IT)
  Receive Date: 20150528
  Receipt Date: 20150820
  Transmission Date: 20151125
  Serious: Yes (Other)
  Sender: FDA-Public Use
  Company Number: IT-SA-2015SA065876

PATIENT
  Sex: Male

DRUGS (2)
  1. CEREZYME [Suspect]
     Active Substance: IMIGLUCERASE
     Route: 041
  2. CEREZYME [Suspect]
     Active Substance: IMIGLUCERASE
     Route: 041
     Dates: start: 19961217

REACTIONS (8)
  - Osteonecrosis [Unknown]
  - Off label use [Unknown]
  - Diarrhoea [Unknown]
  - Fatigue [Unknown]
  - Nausea [Unknown]
  - Abdominal pain [Unknown]
  - Infusion related reaction [Unknown]
  - Asthenia [Unknown]
